FAERS Safety Report 12010738 (Version 2)
Quarter: 2016Q3

REPORT INFORMATION
  Report Type: Report from Study
  Country: CO (occurrence: CO)
  Receive Date: 20160205
  Receipt Date: 20160704
  Transmission Date: 20161109
  Serious: Yes (Other)
  Sender: FDA-Public Use
  Company Number: CO-JNJFOC-20160203111

PATIENT
  Age: 64 Year
  Sex: Female
  Weight: 45 kg

DRUGS (1)
  1. INVEGA SUSTENNA [Suspect]
     Active Substance: PALIPERIDONE PALMITATE
     Indication: SCHIZOPHRENIA
     Route: 030
     Dates: start: 20150330

REACTIONS (6)
  - Neck pain [Recovering/Resolving]
  - Weight decreased [Not Recovered/Not Resolved]
  - Injection site mass [Recovering/Resolving]
  - Injection site pain [Not Recovered/Not Resolved]
  - Injection site rash [Not Recovered/Not Resolved]
  - Pain in extremity [Recovering/Resolving]

NARRATIVE: CASE EVENT DATE: 20151230
